FAERS Safety Report 20087829 (Version 1)
Quarter: 2021Q4

REPORT INFORMATION
  Report Type: Spontaneous
  Country: US (occurrence: US)
  Receive Date: 20211118
  Receipt Date: 20211118
  Transmission Date: 20220303
  Serious: No
  Sender: FDA-Public Use
  Company Number: US-009507513-2110USA006423

PATIENT
  Age: 31 Year
  Sex: Female
  Weight: 74.83 kg

DRUGS (5)
  1. DELSTRIGO [Suspect]
     Active Substance: DORAVIRINE\LAMIVUDINE\TENOFOVIR DISOPROXIL FUMARATE
     Indication: Product used for unknown indication
     Dosage: UNK, QD
     Route: 048
     Dates: start: 20211001
  2. REYATAZ [Suspect]
     Active Substance: ATAZANAVIR SULFATE
     Dosage: UNK; FORMULATION: PILLS
     Dates: end: 202110
  3. TENOFOVIR DISOPROXIL FUMARATE [Suspect]
     Active Substance: TENOFOVIR DISOPROXIL FUMARATE
     Dosage: UNK; FORMULATION: PILLS
     Dates: end: 202110
  4. NORVIR [Suspect]
     Active Substance: RITONAVIR
     Dosage: UNK; FORMULATION: PILLS
     Dates: end: 202110
  5. TIVICAY [Suspect]
     Active Substance: DOLUTEGRAVIR SODIUM
     Dosage: UNK; FORMULATION: PILLS

REACTIONS (2)
  - Viral load abnormal [Unknown]
  - Maternal exposure during pregnancy [Recovered/Resolved]

NARRATIVE: CASE EVENT DATE: 20211015
